FAERS Safety Report 5906981-9 (Version None)
Quarter: 2008Q4

REPORT INFORMATION
  Report Type: 
  Country: None (occurrence: None)
  Receive Date: 20081003
  Receipt Date: 20080717
  Transmission Date: 20090506
  Serious: Yes (Other)
  Sender: FDA-Public Use
  Company Number: NL-ELI_LILLY_AND_COMPANY-NL200808000310

PATIENT
  Sex: Female

DRUGS (9)
  1. HUMALOG [Suspect]
     Route: 058
  2. ISORDIL [Concomitant]
  3. METFORMIN HCL [Concomitant]
  4. COVERSYL [Concomitant]
  5. CRESTOR [Concomitant]
  6. LANSOPRAZOLE [Concomitant]
  7. MONO-CEDOCARD [Concomitant]
  8. ASCAL [Concomitant]
  9. DILTIAZEM HCL [Concomitant]

REACTIONS (2)
  - HYPOGLYCAEMIA [None]
  - LOSS OF CONSCIOUSNESS [None]
